FAERS Safety Report 7620183-X (Version None)
Quarter: 2011Q3

REPORT INFORMATION
  Report Type: 
  Country: None (occurrence: None)
  Receive Date: 20110719
  Receipt Date: 20110705
  Transmission Date: 20111222
  Serious: No
  Sender: FDA-Public Use
  Company Number: PHHY2011JP52064

PATIENT
  Age: 82 Year
  Sex: Female

DRUGS (8)
  1. ALESION [Concomitant]
     Route: 048
  2. LIPOVAS ^BANYU^ [Concomitant]
     Dosage: 5 MG, QD
  3. LASIX [Concomitant]
  4. ISOSORBIDE DINITRATE [Concomitant]
     Route: 048
  5. DIOVAN HCT [Suspect]
     Indication: HYPERTENSION
     Dosage: 1 DF, UNK
     Route: 048
     Dates: start: 20110517, end: 20110610
  6. LANSOPRAZOLE [Concomitant]
     Dosage: 15 MG, UNK
     Route: 048
  7. MIGLITOL [Concomitant]
     Dosage: 150 MG, UNK
     Route: 048
  8. WARFARIN SODIUM [Concomitant]
     Route: 048

REACTIONS (1)
  - VISION BLURRED [None]
